FAERS Safety Report 24245235 (Version 1)
Quarter: 2024Q3

REPORT INFORMATION
  Report Type: Report from Study
  Country: US (occurrence: US)
  Receive Date: 20240823
  Receipt Date: 20240823
  Transmission Date: 20241017
  Serious: Yes (Hospitalization, Other)
  Sender: ABBVIE
  Company Number: US-ABBVIE-5888815

PATIENT
  Age: 63 Year
  Sex: Female

DRUGS (1)
  1. RINVOQ [Suspect]
     Active Substance: UPADACITINIB
     Indication: Ankylosing spondylitis
     Route: 048
     Dates: start: 202211

REACTIONS (4)
  - Loss of consciousness [Recovering/Resolving]
  - Pneumonia [Unknown]
  - COVID-19 [Unknown]
  - Application site bruise [Unknown]

NARRATIVE: CASE EVENT DATE: 20240801
